FAERS Safety Report 14895918 (Version 4)
Quarter: 2023Q1

REPORT INFORMATION
  Report Type: Spontaneous
  Country: PT (occurrence: PT)
  Receive Date: 20180515
  Receipt Date: 20230223
  Transmission Date: 20230418
  Serious: Yes (Hospitalization, Other)
  Sender: FDA-Public Use
  Company Number: PT-NOVPHSZ-PHHY2018PT071486

PATIENT
  Age: 39 Year
  Sex: Male

DRUGS (12)
  1. CIPROFLOXACIN [Suspect]
     Active Substance: CIPROFLOXACIN
     Indication: Endocarditis candida
     Dosage: UNK
     Route: 065
  2. VANCOMYCIN [Suspect]
     Active Substance: VANCOMYCIN
     Indication: Endocarditis candida
     Dosage: UNK
     Route: 065
  3. VANCOMYCIN [Suspect]
     Active Substance: VANCOMYCIN
     Indication: Endocarditis
  4. AMOXICILLIN\CLAVULANIC ACID [Suspect]
     Active Substance: AMOXICILLIN\CLAVULANIC ACID
     Indication: Endocarditis candida
     Dosage: UNK
     Route: 065
  5. AMOXICILLIN\CLAVULANIC ACID [Suspect]
     Active Substance: AMOXICILLIN\CLAVULANIC ACID
     Indication: Endocarditis
  6. FLUCONAZOLE [Suspect]
     Active Substance: FLUCONAZOLE
     Indication: Endocarditis candida
     Dosage: 400 MILLIGRAM, ONCE A DAY
     Route: 042
  7. FLUCONAZOLE [Suspect]
     Active Substance: FLUCONAZOLE
     Indication: Candida infection
  8. GENTAMICIN [Suspect]
     Active Substance: GENTAMICIN
     Indication: Endocarditis candida
     Dosage: UNK
     Route: 065
  9. GENTAMICIN [Suspect]
     Active Substance: GENTAMICIN
     Indication: Endocarditis
  10. TRUVADA [Concomitant]
     Active Substance: EMTRICITABINE\TENOFOVIR DISOPROXIL FUMARATE
     Indication: HIV infection
     Dosage: UNK
     Route: 065
  11. AMPHOTERICIN B [Concomitant]
     Active Substance: AMPHOTERICIN B
     Indication: Candida infection
     Dosage: UNK
     Route: 065
  12. LINEZOLID [Concomitant]
     Active Substance: LINEZOLID
     Indication: Nosocomial infection

REACTIONS (8)
  - Cardiac failure [Recovered/Resolved]
  - Drug ineffective [Unknown]
  - Endocarditis candida [Recovered/Resolved]
  - Mitral valve incompetence [Unknown]
  - Nosocomial infection [Unknown]
  - Aortic valve disease [Unknown]
  - Pulmonary valve disease [Unknown]
  - Condition aggravated [Recovered/Resolved]
